FAERS Safety Report 9007241 (Version 1)
Quarter: 2013Q1

REPORT INFORMATION
  Report Type: Report from Study
  Country: US (occurrence: US)
  Receive Date: 20130110
  Receipt Date: 20130110
  Transmission Date: 20140127
  Serious: Yes (Other)
  Sender: FDA-Public Use
  Company Number: US-ROCHE-1176745

PATIENT
  Age: 68 Year
  Sex: Male
  Weight: 98.97 kg

DRUGS (15)
  1. MYCOPHENOLATE MOFETIL [Suspect]
     Indication: IMMUNOSUPPRESSION
     Route: 048
  2. MYCOPHENOLATE MOFETIL [Suspect]
     Route: 065
     Dates: end: 20120917
  3. ALBUTEROL [Concomitant]
  4. CALCIUM ACETATE [Concomitant]
     Route: 065
  5. ERGOCALCIFEROL [Concomitant]
     Dosage: 50,000 UNITS
     Route: 065
  6. FAMOTIDINE [Concomitant]
     Route: 065
  7. FLUTICASONE [Concomitant]
     Dosage: 250 PUFFS
     Route: 065
  8. FUROSEMIDE [Concomitant]
     Dosage: EVERY OTHER DAY
     Route: 065
  9. INSULIN REGULAR [Concomitant]
  10. NIFEDIPINE [Concomitant]
     Route: 065
  11. PREDNISONE [Concomitant]
     Route: 065
  12. SODIUM BICARBONATE [Concomitant]
     Route: 065
  13. SODIUM POLYSTYRENE SULFONATE [Concomitant]
     Route: 065
  14. TAMSULOSIN [Concomitant]
     Route: 065
  15. TACROLIMUS [Concomitant]

REACTIONS (3)
  - Transplant failure [Unknown]
  - Transplant rejection [Unknown]
  - Renal failure [Unknown]
